FAERS Safety Report 8442142-X (Version None)
Quarter: 2012Q2

REPORT INFORMATION
  Report Type: 
  Country: None (occurrence: None)
  Receive Date: 20120615
  Receipt Date: 20120302
  Transmission Date: 20120825
  Serious: No
  Sender: FDA-Public Use
  Company Number: US-NOVEN-12US004202

PATIENT
  Sex: Male
  Weight: 24.943 kg

DRUGS (3)
  1. REMERON [Concomitant]
     Indication: INSOMNIA
     Dosage: 30 MG, UNK
     Route: 048
  2. REMERON [Concomitant]
     Indication: DECREASED APPETITE
  3. DAYTRANA [Suspect]
     Indication: ATTENTION DEFICIT/HYPERACTIVITY DISORDER
     Dosage: 10 MG, UNK
     Route: 062

REACTIONS (4)
  - DRUG ADMINISTRATION ERROR [None]
  - WRONG TECHNIQUE IN DRUG USAGE PROCESS [None]
  - PRODUCT QUALITY ISSUE [None]
  - DRUG INEFFECTIVE [None]
